FAERS Safety Report 4538922-3 (Version None)
Quarter: 2004Q4

REPORT INFORMATION
  Report Type: 
  Country: None (occurrence: None)
  Receive Date: 20041222
  Receipt Date: 20041216
  Transmission Date: 20050328
  Serious: Yes (Death, Other)
  Sender: FDA-Public Use
  Company Number: USA041285616

PATIENT
  Age: 50 Year
  Sex: Female

DRUGS (5)
  1. ZYPREXA [Suspect]
  2. NEURONTIN [Concomitant]
  3. COUMADIN [Concomitant]
  4. TRAMADOL HCL [Concomitant]
  5. CITALOPRAM [Concomitant]

REACTIONS (3)
  - CARDIAC DISORDER [None]
  - CHEST PAIN [None]
  - THERAPEUTIC AGENT TOXICITY [None]
